FAERS Safety Report 23325312 (Version 1)
Quarter: 2023Q4

REPORT INFORMATION
  Report Type: Spontaneous
  Country: US (occurrence: US)
  Receive Date: 20231221
  Receipt Date: 20231221
  Transmission Date: 20240110
  Serious: Yes (Hospitalization)
  Sender: FDA-Public Use
  Company Number: US-E2BLSMVVAL-SPO/USA/23/0032425

PATIENT
  Sex: Male

DRUGS (1)
  1. LENALIDOMIDE [Suspect]
     Active Substance: LENALIDOMIDE
     Indication: Product used for unknown indication
     Dosage: 10 MG, 28 COUNT

REACTIONS (12)
  - Nasopharyngitis [Unknown]
  - Cough [Unknown]
  - Brain injury [Unknown]
  - Aspiration [Unknown]
  - Cardiac arrest [Recovered/Resolved]
  - Asphyxia [Unknown]
  - Coma [Unknown]
  - Adverse event [Unknown]
  - Dyspnoea [Unknown]
  - Pulse abnormal [Unknown]
  - Cyanosis [Unknown]
  - Treatment noncompliance [Unknown]
